FAERS Safety Report 6725438-9 (Version None)
Quarter: 2010Q2

REPORT INFORMATION
  Report Type: 
  Country: None (occurrence: None)
  Receive Date: 20100514
  Receipt Date: 20100505
  Transmission Date: 20101027
  Serious: Yes (Other)
  Sender: FDA-Public Use
  Company Number: CA-JNJFOC-20100501485

PATIENT
  Sex: Female

DRUGS (3)
  1. REMICADE [Suspect]
     Indication: PSORIATIC ARTHROPATHY
     Dosage: DOSAGE: ^3 VIALS^
     Route: 042
  2. REMICADE [Suspect]
     Route: 042
  3. SYNTHROID [Concomitant]
     Indication: HYPOTHYROIDISM
     Dosage: DURATION: APPROXIMATELY 12 YEARS

REACTIONS (6)
  - BLOOD DISORDER [None]
  - FAECES DISCOLOURED [None]
  - FATIGUE [None]
  - MUCOSAL INFLAMMATION [None]
  - RASH VESICULAR [None]
  - WEIGHT INCREASED [None]
